FAERS Safety Report 5500928-5 (Version None)
Quarter: 2007Q4

REPORT INFORMATION
  Report Type: 
  Country: None (occurrence: None)
  Receive Date: 20071029
  Receipt Date: 20071023
  Transmission Date: 20080405
  Serious: Yes (Other)
  Sender: FDA-Public Use
  Company Number: PHEH2007US13942

PATIENT
  Age: 79 Year
  Sex: Male

DRUGS (1)
  1. FAMVIR [Suspect]
     Dosage: 500MG Q8H
     Dates: start: 20070816, end: 20070822

REACTIONS (1)
  - MEMORY IMPAIRMENT [None]
